FAERS Safety Report 14454002 (Version 1)
Quarter: 2018Q1

REPORT INFORMATION
  Report Type: Spontaneous
  Country: US (occurrence: US)
  Receive Date: 20180129
  Receipt Date: 20180129
  Transmission Date: 20180509
  Serious: No
  Sender: FDA-Public Use
  Company Number: US-ALLERGAN-1715457US

PATIENT
  Sex: Female

DRUGS (3)
  1. LIPITOR [Concomitant]
     Active Substance: ATORVASTATIN CALCIUM
     Indication: BLOOD CHOLESTEROL INCREASED
     Dosage: UNK
     Route: 065
  2. TAZORAC [Suspect]
     Active Substance: TAZAROTENE
     Indication: ACNE
     Dosage: UNK, QD
     Route: 061
     Dates: start: 2007, end: 20170416
  3. TAZORAC [Suspect]
     Active Substance: TAZAROTENE
     Indication: RASH ERYTHEMATOUS

REACTIONS (1)
  - Drug ineffective [Unknown]
